FAERS Safety Report 16850210 (Version 1)
Quarter: 2019Q3

REPORT INFORMATION
  Report Type: Report from Study
  Country: ZW (occurrence: ZW)
  Receive Date: 20190925
  Receipt Date: 20190925
  Transmission Date: 20191005
  Serious: Yes (Other)
  Sender: FDA-Public Use
  Company Number: ZW-MYLANLABS-2019M1088651

PATIENT

DRUGS (4)
  1. EFAVIRENZ. [Suspect]
     Active Substance: EFAVIRENZ
     Indication: HIV INFECTION
     Dosage: OPEN CAPSULE
     Route: 065
  2. EFAVIRENZ. [Interacting]
     Active Substance: EFAVIRENZ
     Indication: TUBERCULOSIS
  3. RIFAMPIN. [Interacting]
     Active Substance: RIFAMPIN
     Indication: HIV INFECTION
     Route: 065
  4. RIFAMPIN. [Interacting]
     Active Substance: RIFAMPIN
     Indication: TUBERCULOSIS

REACTIONS (2)
  - Labelled drug-drug interaction medication error [Recovering/Resolving]
  - Neutropenia [Recovering/Resolving]
